FAERS Safety Report 8875457 (Version 2)
Quarter: 2012Q4

REPORT INFORMATION
  Report Type: 
  Country: US (occurrence: US)
  Receive Date: 20121030
  Receipt Date: 20121113
  Transmission Date: 20130627
  Serious: Yes (Other)
  Sender: FDA-Public Use
  Company Number: US-MEDICIS-2012P1061099

PATIENT
  Age: 82 Year
  Sex: Female
  Weight: 68.04 kg

DRUGS (2)
  1. ZYCLARA [Suspect]
     Route: 061
     Dates: start: 2012, end: 2012
  2. ZYCLARA [Suspect]
     Route: 061
     Dates: start: 2012, end: 2012

REACTIONS (7)
  - Systemic lupus erythematosus [Not Recovered/Not Resolved]
  - Application site erythema [Not Recovered/Not Resolved]
  - Application site dryness [Recovering/Resolving]
  - Alopecia [Not Recovered/Not Resolved]
  - Off label use [Unknown]
  - Application site exfoliation [Not Recovered/Not Resolved]
  - Pruritus [Recovering/Resolving]
